FAERS Safety Report 16315997 (Version 4)
Quarter: 2019Q4

REPORT INFORMATION
  Report Type: Spontaneous
  Country: US (occurrence: US)
  Receive Date: 20190515
  Receipt Date: 20191204
  Transmission Date: 20200122
  Serious: No
  Sender: FDA-Public Use
  Company Number: US-SA-2019SA126850

PATIENT
  Age: 11 Year
  Sex: Male
  Weight: 56.69 kg

DRUGS (18)
  1. ACETAMINOPHEN. [Concomitant]
     Active Substance: ACETAMINOPHEN
     Dosage: 1 TAB, PRN
     Route: 048
     Dates: start: 20190725
  2. FABRAZYME [Suspect]
     Active Substance: AGALSIDASE BETA
     Indication: FABRY^S DISEASE
     Dosage: 60 MG, QOW
     Route: 065
     Dates: start: 20150422
  3. NORMAL SALINE [Concomitant]
     Active Substance: SODIUM CHLORIDE
     Dosage: 0.9 %; UNK
     Route: 042
     Dates: start: 20190405
  4. MEDROL [Concomitant]
     Active Substance: METHYLPREDNISOLONE
     Indication: ANAPHYLACTIC REACTION
     Dosage: 25 MG, PRN
     Route: 042
     Dates: start: 20151110
  5. ACETAMINOPHEN. [Concomitant]
     Active Substance: ACETAMINOPHEN
     Indication: PREMEDICATION
     Dosage: 325 MG, UNK
     Route: 048
     Dates: start: 20190419
  6. DIPHENHYDRAMINE. [Concomitant]
     Active Substance: DIPHENHYDRAMINE
     Dosage: 12.5 MG, PRN
     Route: 048
     Dates: start: 20190405
  7. EPINEPHRINE. [Concomitant]
     Active Substance: EPINEPHRINE
     Indication: ANAPHYLACTIC REACTION
     Dosage: 0.3 MG, PRN
     Route: 030
     Dates: start: 20190405
  8. STERILE WATER [Concomitant]
     Active Substance: WATER
     Dosage: 1 EACH
     Route: 042
     Dates: start: 20190405
  9. IBUPROFEN. [Concomitant]
     Active Substance: IBUPROFEN
     Dosage: 1 DF, PRN
     Route: 048
     Dates: start: 20190725
  10. NORMAL SALINE [Concomitant]
     Active Substance: SODIUM CHLORIDE
     Dosage: 0.9 %; UNK
     Route: 042
     Dates: start: 20190419
  11. VITAMINS NOS [Concomitant]
     Active Substance: VITAMINS
     Dosage: 2 TAB, QD
     Route: 048
     Dates: start: 20160122
  12. CLARITIN [CLARITHROMYCIN] [Concomitant]
     Active Substance: CLARITHROMYCIN
     Indication: PREMEDICATION
     Dosage: 1 TAB, UNK
     Route: 048
     Dates: start: 20151111
  13. SOLU-MEDROL [Concomitant]
     Active Substance: METHYLPREDNISOLONE SODIUM SUCCINATE
     Indication: ANAPHYLACTIC REACTION
     Dosage: 1 MG/KG, PRN
     Route: 042
     Dates: start: 20190405
  14. DIPHENHYDRAMINE. [Concomitant]
     Active Substance: DIPHENHYDRAMINE
     Indication: ANAPHYLACTIC REACTION
     Dosage: 12.5 MG, PRN
     Route: 048
     Dates: start: 20190419
  15. VITAMIN D3 [Concomitant]
     Active Substance: CHOLECALCIFEROL
     Dosage: 1 CAP, QD
     Route: 048
     Dates: start: 20190419
  16. VITAMIN D3 [Concomitant]
     Active Substance: CHOLECALCIFEROL
     Dosage: 1 CAP; QD
     Route: 048
     Dates: start: 20190405
  17. FABRAZYME [Suspect]
     Active Substance: AGALSIDASE BETA
     Dosage: 60 MG, QOW
     Route: 042
     Dates: start: 20190405
  18. LMX [LIDOCAINE] [Concomitant]
     Dosage: 4 %, UNK
     Route: 061
     Dates: start: 20190405

REACTIONS (4)
  - Neuralgia [Not Recovered/Not Resolved]
  - Pain [Recovered/Resolved]
  - Paraesthesia [Recovered/Resolved]
  - Throat irritation [Unknown]

NARRATIVE: CASE EVENT DATE: 20190419
